FAERS Safety Report 7807200 (Version 3)
Quarter: 2014Q2

REPORT INFORMATION
  Report Type: Spontaneous
  Country: US (occurrence: US)
  Receive Date: 20110210
  Receipt Date: 20140506
  Transmission Date: 20141212
  Serious: Yes (Hospitalization)
  Sender: FDA-Public Use
  Company Number: US-BAYER-2011-013008

PATIENT
  Age: 26 Year
  Sex: Female

DRUGS (7)
  1. YASMIN [Suspect]
     Indication: CONTRACEPTION
     Dosage: UNK
     Dates: start: 2003, end: 2006
  2. YASMIN [Suspect]
     Indication: CONTRACEPTION
     Dosage: UNK
     Dates: start: 2004, end: 2009
  3. ALBUTEROL INHALER [Concomitant]
     Dosage: UNK
     Dates: start: 2006
  4. ADVAIR [Concomitant]
     Dosage: UNK
     Dates: start: 2008, end: 2009
  5. ADVIL [Concomitant]
     Dosage: UNK
     Route: 048
     Dates: start: 20041026
  6. PREVACID [Concomitant]
     Dosage: UNK
     Route: 048
     Dates: start: 20041026
  7. VICODIN [Concomitant]

REACTIONS (8)
  - Porcelain gallbladder [None]
  - Cholecystitis chronic [None]
  - Pain [None]
  - Injury [None]
  - General physical health deterioration [None]
  - Depression [None]
  - Anxiety [None]
  - Emotional distress [None]
